FAERS Safety Report 15931771 (Version 2)
Quarter: 2019Q1

REPORT INFORMATION
  Report Type: Spontaneous
  Country: MX (occurrence: MX)
  Receive Date: 20190207
  Receipt Date: 20190307
  Transmission Date: 20190417
  Serious: Yes (Death)
  Sender: FDA-Public Use
  Company Number: MX-BEH-2019098942

PATIENT
  Age: 60 Year
  Sex: Male

DRUGS (2)
  1. RIASTAP [Suspect]
     Active Substance: FIBRINOGEN HUMAN
     Indication: TRANSPLANT
  2. RIASTAP [Suspect]
     Active Substance: FIBRINOGEN HUMAN
     Indication: SEPSIS
     Dosage: 70MG/KG (A TOTAL OF 10 VIALS WERE USED)
     Route: 065
     Dates: start: 201812, end: 201812

REACTIONS (1)
  - Post procedural sepsis [Fatal]
